FAERS Safety Report 17742099 (Version 3)
Quarter: 2020Q4

REPORT INFORMATION
  Report Type: Report from Study
  Country: DE (occurrence: DE)
  Receive Date: 20200504
  Receipt Date: 20201228
  Transmission Date: 20210113
  Serious: Yes (Other)
  Sender: FDA-Public Use
  Company Number: DE-INCYTE CORPORATION-2018IN004440

PATIENT

DRUGS (23)
  1. INCB018424 [Suspect]
     Active Substance: RUXOLITINIB
     Dosage: 20 MG, BID (PER DAY)
     Route: 048
     Dates: start: 20180605, end: 20180725
  2. BISOPROLOL [Concomitant]
     Active Substance: BISOPROLOL
     Indication: HYPERTENSION
     Dosage: 10 MG
     Route: 065
     Dates: start: 20200123, end: 20200716
  3. BISOPROLOL [Concomitant]
     Active Substance: BISOPROLOL
     Dosage: 5 UNK
     Route: 065
     Dates: start: 20200717
  4. INCB018424 [Suspect]
     Active Substance: RUXOLITINIB
     Indication: MYELOFIBROSIS
     Dosage: 40 MG, BID (PER DAY
     Route: 048
     Dates: start: 20180425
  5. INCB018424 [Suspect]
     Active Substance: RUXOLITINIB
     Dosage: 30 MG, BID (PER DAY)
     Route: 048
     Dates: start: 20180509, end: 20180604
  6. INCB018424 [Suspect]
     Active Substance: RUXOLITINIB
     Dosage: 10 MG, QD (PER DAY)
     Route: 048
     Dates: start: 20190817, end: 20190906
  7. RIVAROXABAN [Concomitant]
     Active Substance: RIVAROXABAN
     Indication: ATRIAL FIBRILLATION
     Dosage: 20 MG, UNK
     Route: 065
     Dates: start: 2013, end: 20200128
  8. INCB018424 [Suspect]
     Active Substance: RUXOLITINIB
     Dosage: 20 MG, BID (PER DAY)
     Route: 048
     Dates: start: 20200908, end: 20201116
  9. INCB018424 [Suspect]
     Active Substance: RUXOLITINIB
     Dosage: 10 MG, QD (PER DAY)
     Route: 048
     Dates: start: 20201117
  10. PANTOPRAZOLE [Concomitant]
     Active Substance: PANTOPRAZOLE
     Indication: PRODUCT USED FOR UNKNOWN INDICATION
     Dosage: 45.11 MG, UNK (SINCE 4 YEARS)
     Route: 065
  11. PREDNISOLONE. [Concomitant]
     Active Substance: PREDNISOLONE
     Indication: RHEUMATOID ARTHRITIS
     Dosage: 2 MG, UNK (SINCE 4 YEARS)
     Route: 065
  12. TORASEMIDE [Concomitant]
     Active Substance: TORSEMIDE
     Dosage: 5 UNK
     Route: 065
     Dates: start: 20200908
  13. INCB018424 [Suspect]
     Active Substance: RUXOLITINIB
     Dosage: 10 MG, BID (PER DAY)
     Route: 048
     Dates: start: 20180726, end: 20180920
  14. INCB018424 [Suspect]
     Active Substance: RUXOLITINIB
     Dosage: 20 MG, BID (PER DAY)
     Route: 048
     Dates: start: 20181114, end: 20190816
  15. FOLIC ACID. [Concomitant]
     Active Substance: FOLIC ACID
     Indication: PRODUCT USED FOR UNKNOWN INDICATION
     Dosage: 5 MG, QW (SINCE 5 YEARS)
     Route: 065
     Dates: end: 201912
  16. METHOTREXATE. [Concomitant]
     Active Substance: METHOTREXATE
     Indication: RHEUMATOID ARTHRITIS
     Dosage: 5.48 OT, QW (SINCE 5 YEARS)
     Route: 065
     Dates: end: 201912
  17. ATORVASTATIN [Concomitant]
     Active Substance: ATORVASTATIN
     Indication: HYPERTENSION
     Dosage: 10.82 UNK (SINCE 5 YEARS)
     Route: 065
  18. DIGITOXIN [Concomitant]
     Active Substance: DIGITOXIN
     Indication: ATRIAL FIBRILLATION
     Dosage: 0.05 MG, UNK
     Route: 065
     Dates: start: 201802
  19. INCB018424 [Suspect]
     Active Substance: RUXOLITINIB
     Dosage: 20 MG, BID (PER DAY)
     Route: 048
     Dates: start: 20190907, end: 20200831
  20. METOPROLOL. [Concomitant]
     Active Substance: METOPROLOL
     Indication: HYPERTENSION
     Dosage: 190 MG, UNK (SINCE 4 YEARS)
     Route: 065
     Dates: end: 20190122
  21. INCB018424 [Suspect]
     Active Substance: RUXOLITINIB
     Dosage: 10 MG (ONCE DAILY (1-0-0), AND EVERY SECOND DAY TWICE DAILY (1-0-1))
     Route: 048
     Dates: start: 20180921, end: 20181113
  22. TORASEMIDE [Concomitant]
     Active Substance: TORSEMIDE
     Indication: CARDIAC FAILURE
     Dosage: 15 MG
     Route: 065
     Dates: start: 20200129, end: 20200829
  23. RIVAROXABAN [Concomitant]
     Active Substance: RIVAROXABAN
     Dosage: 15 UNK
     Route: 065
     Dates: start: 20200129

REACTIONS (5)
  - Anaemia [Recovered/Resolved]
  - Dyspnoea exertional [Not Recovered/Not Resolved]
  - Polyneuropathy [Not Recovered/Not Resolved]
  - Fatigue [Not Recovered/Not Resolved]
  - Goitre [Not Recovered/Not Resolved]

NARRATIVE: CASE EVENT DATE: 20180425
